FAERS Safety Report 24136713 (Version 1)
Quarter: 2024Q3

REPORT INFORMATION
  Report Type: Spontaneous
  Country: US (occurrence: US)
  Receive Date: 20240725
  Receipt Date: 20240725
  Transmission Date: 20241017
  Serious: No
  Sender: CSL BEHRING
  Company Number: US-BEH-2024176152

PATIENT
  Sex: Female
  Weight: 47.619 kg

DRUGS (1)
  1. PRIVIGEN [Suspect]
     Active Substance: HUMAN IMMUNOGLOBULIN G
     Indication: Hypogammaglobulinaemia
     Dosage: 20 G, QW
     Route: 042

REACTIONS (2)
  - Migraine [Recovered/Resolved]
  - Rash [Recovered/Resolved]
